FAERS Safety Report 18217721 (Version 1)
Quarter: 2020Q3

REPORT INFORMATION
  Report Type: Spontaneous
  Country: ES (occurrence: ES)
  Receive Date: 20200901
  Receipt Date: 20200901
  Transmission Date: 20201103
  Serious: Yes (Other)
  Sender: FDA-Public Use
  Company Number: ES-GLAXOSMITHKLINE-ES2020170800

PATIENT
  Age: 58 Year
  Sex: Female
  Weight: 74.5 kg

DRUGS (4)
  1. MALARONE [Suspect]
     Active Substance: ATOVAQUONE\PROGUANIL HYDROCHLORIDE
     Dosage: 1 DF, QD
     Route: 065
     Dates: start: 20180923, end: 20181019
  2. MALARONE [Suspect]
     Active Substance: ATOVAQUONE\PROGUANIL HYDROCHLORIDE
     Dosage: 1 DF, QD
     Route: 065
     Dates: start: 20180326, end: 20180409
  3. MALARONE [Suspect]
     Active Substance: ATOVAQUONE\PROGUANIL HYDROCHLORIDE
     Dosage: 1 DF, QD
     Route: 065
     Dates: start: 20181210, end: 20190101
  4. MALARONE [Suspect]
     Active Substance: ATOVAQUONE\PROGUANIL HYDROCHLORIDE
     Indication: MALARIA PROPHYLAXIS
     Dosage: 1 DF, QD (ACCORDING TO MEDICAL PRESCRIPTION)
     Route: 048
     Dates: start: 20171028, end: 20171117

REACTIONS (1)
  - Cataract [Not Recovered/Not Resolved]

NARRATIVE: CASE EVENT DATE: 2018
